APPROVED DRUG PRODUCT: ISOVUE-200
Active Ingredient: IOPAMIDOL
Strength: 41%
Dosage Form/Route: INJECTABLE;INJECTION
Application: N018735 | Product #006 | TE Code: AP2
Applicant: BRACCO DIAGNOSTICS INC
Approved: Jul 7, 1987 | RLD: Yes | RS: Yes | Type: RX

EXCLUSIVITY:
Code: I-975 | Date: Oct 10, 2028